FAERS Safety Report 15043709 (Version 1)
Quarter: 2018Q2

REPORT INFORMATION
  Report Type: Spontaneous
  Country: JP (occurrence: JP)
  Receive Date: 20180621
  Receipt Date: 20180621
  Transmission Date: 20180711
  Serious: Yes (Hospitalization, Other)
  Sender: FDA-Public Use
  Company Number: JP-BAYER-2018-114707

PATIENT
  Sex: Male

DRUGS (2)
  1. STIVARGA [Suspect]
     Active Substance: REGORAFENIB
     Indication: COLON CANCER
     Dosage: 40 MG, TID
     Route: 048
     Dates: start: 20180528, end: 20180612
  2. TRAMADOL HYDROCHLORIDE. [Suspect]
     Active Substance: TRAMADOL HYDROCHLORIDE
     Indication: BACK PAIN
     Dosage: UNK
     Route: 048

REACTIONS (5)
  - Tumour cavitation [None]
  - Pyrexia [None]
  - Metastases to lung [None]
  - Duodenal perforation [None]
  - Gastric mucosal lesion [None]

NARRATIVE: CASE EVENT DATE: 20180605
